FAERS Safety Report 10574804 (Version 1)
Quarter: 2014Q4

REPORT INFORMATION
  Report Type: Spontaneous
  Country: AU (occurrence: AU)
  Receive Date: 20141110
  Receipt Date: 20141110
  Transmission Date: 20150529
  Serious: Yes (Other)
  Sender: FDA-Public Use
  Company Number: AU-SYMPLMED PHARMACEUTICALS-2014SYM00154

PATIENT
  Age: 51 Year
  Sex: Female
  Weight: 82 kg

DRUGS (1)
  1. ACEON [Suspect]
     Active Substance: PERINDOPRIL ERBUMINE
     Indication: PROPHYLAXIS
     Dosage: 1 DF, QD
     Route: 048
     Dates: start: 20090122, end: 20111127

REACTIONS (12)
  - Acarodermatitis [None]
  - Liver function test abnormal [Not Recovered/Not Resolved]
  - Gamma-glutamyltransferase increased [None]
  - Pruritus [None]
  - Hepatomegaly [Not Recovered/Not Resolved]
  - Blood alkaline phosphatase increased [None]
  - Fatty liver alcoholic [None]
  - Alcoholic liver disease [None]
  - Mean cell volume decreased [None]
  - Fungal skin infection [None]
  - Alanine aminotransferase increased [None]
  - Eosinophil count increased [None]

NARRATIVE: CASE EVENT DATE: 20100204
